FAERS Safety Report 5785949-X (Version None)
Quarter: 2008Q2

REPORT INFORMATION
  Report Type: 
  Country: None (occurrence: None)
  Receive Date: 20080624
  Receipt Date: 20070619
  Transmission Date: 20081010
  Serious: No
  Sender: FDA-Public Use
  Company Number: US-ASTRAZENECA-2007UW14671

PATIENT
  Age: 44 Year
  Sex: Female
  Weight: 67.1 kg

DRUGS (6)
  1. PULMICORT [Suspect]
     Indication: ASTHMA
     Dosage: 200 MCG
     Route: 055
  2. PULMICORT [Suspect]
     Dosage: 200 MCG
     Route: 055
  3. ZOLOFT [Concomitant]
  4. LIPITOR [Concomitant]
  5. ALBUTEROL [Concomitant]
  6. SINGULAIR [Concomitant]

REACTIONS (2)
  - DECREASED APPETITE [None]
  - DRUG INEFFECTIVE [None]
